FAERS Safety Report 9439642 (Version 1)
Quarter: 2013Q3

REPORT INFORMATION
  Report Type: Spontaneous
  Country: US (occurrence: US)
  Receive Date: 20130805
  Receipt Date: 20130805
  Transmission Date: 20140515
  Serious: No
  Sender: FDA-Public Use
  Company Number: US-PFIZER INC-2013221636

PATIENT
  Age: 65 Year
  Sex: Female
  Weight: 67.12 kg

DRUGS (4)
  1. CELEBREX [Suspect]
     Indication: ARTHRALGIA
     Dosage: 400 MG, 1X/DAY
     Route: 048
     Dates: start: 20130723, end: 20130723
  2. CELEBREX [Suspect]
     Dosage: 200 MG, 1X/DAY
     Route: 048
     Dates: start: 20130724, end: 20130727
  3. AMLODIPINE [Concomitant]
     Indication: HYPERTENSION
     Dosage: 10 MG, UNK
  4. HYDROCHLOROTHIAZIDE/LOSARTAN [Concomitant]
     Indication: HYPERTENSION
     Dosage: LOSARTAN 50MG / HYDROCHLOROTHIAZIDE 12.5 MG, UNK

REACTIONS (1)
  - Drug ineffective [Unknown]
